FAERS Safety Report 9254905 (Version 1)
Quarter: 2013Q2

REPORT INFORMATION
  Report Type: Spontaneous
  Country: US (occurrence: None)
  Receive Date: 20130418
  Receipt Date: 20130418
  Transmission Date: 20140414
  Serious: Yes (Other)
  Sender: FDA-Public Use
  Company Number: US-1197550

PATIENT
  Sex: Female

DRUGS (1)
  1. SULFACETAMIDE SODIUM [Suspect]
     Indication: CONJUNCTIVITIS
     Route: 047
     Dates: start: 20130327, end: 20130328

REACTIONS (5)
  - Diplopia [None]
  - Vision blurred [None]
  - Visual acuity reduced [None]
  - Ocular hyperaemia [None]
  - Eye pain [None]
